FAERS Safety Report 5209449-0 (Version None)
Quarter: 2007Q1

REPORT INFORMATION
  Report Type: 
  Country: None (occurrence: None)
  Receive Date: 20070116
  Receipt Date: 20070109
  Transmission Date: 20070707
  Serious: Yes (Death)
  Sender: FDA-Public Use
  Company Number: IT-PFIZER INC-2006055454

PATIENT
  Sex: Male
  Weight: 98 kg

DRUGS (8)
  1. SU-011,248 [Suspect]
     Indication: METASTATIC RENAL CELL CARCINOMA
     Route: 048
     Dates: start: 20060302, end: 20060317
  2. SELOKEN [Concomitant]
     Route: 048
  3. NORVASC [Concomitant]
     Route: 048
  4. ASPIRIN [Concomitant]
     Route: 048
  5. SINVACOR [Concomitant]
     Route: 048
  6. LASIX [Concomitant]
     Route: 048
  7. SOLDESAM [Concomitant]
     Route: 048
  8. LANSOX [Concomitant]
     Route: 048

REACTIONS (1)
  - DEATH [None]
